FAERS Safety Report 6007792-9 (Version None)
Quarter: 2008Q4

REPORT INFORMATION
  Report Type: 
  Country: None (occurrence: None)
  Receive Date: 20081215
  Receipt Date: 20081202
  Transmission Date: 20090506
  Serious: Yes (Death)
  Sender: FDA-Public Use
  Company Number: 1-17023883

PATIENT
  Age: 72 Year
  Sex: Male

DRUGS (5)
  1. METFORMIN HCL TABLET 1000 MG [Suspect]
     Indication: TYPE 2 DIABETES MELLITUS
     Dosage: 1000 MG, THREE TIMES DAILY, ORAL
     Route: 048
  2. TOLBUFAMIDE [Concomitant]
  3. SIMVASTATIN [Concomitant]
  4. HYDROCHLOROTHIAZIDE [Concomitant]
  5. ENALAPRIL MALEATE [Concomitant]

REACTIONS (11)
  - ABDOMINAL DISCOMFORT [None]
  - CATHETER SEPSIS [None]
  - COMA [None]
  - CONTINUOUS HAEMODIAFILTRATION [None]
  - EXTREMITY NECROSIS [None]
  - HAEMODYNAMIC INSTABILITY [None]
  - ILEUS [None]
  - LACTIC ACIDOSIS [None]
  - PNEUMONIA [None]
  - RENAL FAILURE ACUTE [None]
  - RESPIRATORY DISTRESS [None]
